FAERS Safety Report 21415937 (Version 8)
Quarter: 2024Q1

REPORT INFORMATION
  Report Type: Spontaneous
  Country: JP (occurrence: JP)
  Receive Date: 20221006
  Receipt Date: 20240216
  Transmission Date: 20240409
  Serious: Yes (Hospitalization, Other)
  Sender: FDA-Public Use
  Company Number: JP-ASTELLAS-2022JP013857

PATIENT
  Age: 85 Year
  Sex: Male
  Weight: 58 kg

DRUGS (2)
  1. PADCEV [Suspect]
     Active Substance: ENFORTUMAB VEDOTIN-EJFV
     Indication: Transitional cell carcinoma
     Route: 041
     Dates: start: 20220722
  2. PADCEV [Suspect]
     Active Substance: ENFORTUMAB VEDOTIN-EJFV
     Dosage: UNK UNK, UNKNOWN FREQ.
     Route: 041
     Dates: start: 20221007

REACTIONS (8)
  - Hydronephrosis [Unknown]
  - Bladder tamponade [Unknown]
  - Haemoglobin decreased [Recovered/Resolved]
  - Haematuria [Recovered/Resolved]
  - Skin ulcer [Recovered/Resolved]
  - Pain in extremity [Not Recovered/Not Resolved]
  - Haemoglobin decreased [Recovered/Resolved]
  - Fall [Recovered/Resolved]

NARRATIVE: CASE EVENT DATE: 20220912
